FAERS Safety Report 9885488 (Version 1)
Quarter: 2014Q1

REPORT INFORMATION
  Report Type: Spontaneous
  Country: US (occurrence: US)
  Receive Date: 20140210
  Receipt Date: 20140210
  Transmission Date: 20141002
  Serious: No
  Sender: FDA-Public Use
  Company Number: US-PFIZER INC-2014035097

PATIENT
  Age: 57 Year
  Sex: Female
  Weight: 68.03 kg

DRUGS (2)
  1. DIFLUCAN [Suspect]
     Indication: FUNGAL INFECTION
     Dosage: UNK
     Dates: start: 201401
  2. QSYMIA [Concomitant]
     Dosage: 7.5/ 46MG, UNK
     Dates: start: 20140106

REACTIONS (1)
  - Pruritus [Not Recovered/Not Resolved]
